FAERS Safety Report 6014531-4 (Version None)
Quarter: 2008Q4

REPORT INFORMATION
  Report Type: 
  Country: None (occurrence: None)
  Receive Date: 20081219
  Receipt Date: 20080804
  Transmission Date: 20090506
  Serious: No
  Sender: FDA-Public Use
  Company Number: A0740938A

PATIENT
  Age: 37 Year
  Sex: Male

DRUGS (2)
  1. AVODART [Suspect]
     Route: 048
     Dates: start: 20080201
  2. UNKNOWN [Concomitant]

REACTIONS (4)
  - ABNORMAL BEHAVIOUR [None]
  - ANXIETY [None]
  - DISORIENTATION [None]
  - GRANDIOSITY [None]
